FAERS Safety Report 14466348 (Version 1)
Quarter: 2018Q1

REPORT INFORMATION
  Report Type: Spontaneous
  Country: JP (occurrence: JP)
  Receive Date: 20180131
  Receipt Date: 20180131
  Transmission Date: 20180509
  Serious: Yes (Other)
  Sender: FDA-Public Use
  Company Number: JP-SUN PHARMACEUTICAL INDUSTRIES LTD-2018RR-161886

PATIENT
  Age: 53 Year
  Sex: Male

DRUGS (7)
  1. AFATINIB [Suspect]
     Active Substance: AFATINIB
     Indication: METASTASES TO PANCREAS
     Dosage: 40 MG, DAILY
     Route: 048
  2. GEMCITABINE [Suspect]
     Active Substance: GEMCITABINE\GEMCITABINE HYDROCHLORIDE
     Indication: LUNG ADENOCARCINOMA STAGE III
     Dosage: 1000 MG/M2, ON DAYS 1 AND 8
     Route: 065
  3. ERLOTINIB [Suspect]
     Active Substance: ERLOTINIB
     Indication: METASTASES TO CENTRAL NERVOUS SYSTEM
     Dosage: 150 MG, DAILY
     Route: 048
  4. CARBOPLATIN. [Suspect]
     Active Substance: CARBOPLATIN
     Indication: LUNG CARCINOMA CELL TYPE UNSPECIFIED RECURRENT
     Dosage: UNK
     Route: 065
  5. PACLITAXEL. [Suspect]
     Active Substance: PACLITAXEL
     Indication: LUNG CARCINOMA CELL TYPE UNSPECIFIED RECURRENT
     Dosage: 45 MG/M2, 1/WEEK
     Route: 065
  6. CISPLATIN. [Suspect]
     Active Substance: CISPLATIN
     Indication: LUNG ADENOCARCINOMA STAGE III
     Dosage: 40 MG/M2, 1 CYCLE EVERY 3 WEEKS ON DAYS 1 AND 8
     Route: 065
  7. ERLOTINIB [Suspect]
     Active Substance: ERLOTINIB
     Dosage: 100 UNK, UNK
     Route: 048

REACTIONS (6)
  - Disease progression [Recovered/Resolved]
  - Hepatotoxicity [Recovering/Resolving]
  - Pyrexia [Unknown]
  - Headache [Recovered/Resolved]
  - Drug effect incomplete [Recovered/Resolved]
  - Diarrhoea [Recovered/Resolved]
